FAERS Safety Report 17599388 (Version 3)
Quarter: 2020Q2

REPORT INFORMATION
  Report Type: Report from Study
  Country: US (occurrence: US)
  Receive Date: 20200330
  Receipt Date: 20200424
  Transmission Date: 20200713
  Serious: Yes (Death, Hospitalization, Other)
  Sender: FDA-Public Use
  Company Number: US-CLOVIS ONCOLOGY-CLO-2020-000586

PATIENT
  Age: 53 Year
  Sex: Female

DRUGS (1)
  1. RUBRACA [Suspect]
     Active Substance: RUCAPARIB CAMSYLATE
     Indication: OVARIAN CANCER
     Dosage: 600 MG IN AM/300 MG IN PM
     Route: 048
     Dates: start: 20200321, end: 2020

REACTIONS (5)
  - Hypertension [Unknown]
  - Death [Fatal]
  - Small intestinal obstruction [Unknown]
  - Fluid retention [Unknown]
  - Adverse event [Unknown]

NARRATIVE: CASE EVENT DATE: 20200331
